FAERS Safety Report 4553469-6 (Version None)
Quarter: 2005Q1

REPORT INFORMATION
  Report Type: 
  Country: None (occurrence: None)
  Receive Date: 20050112
  Receipt Date: 20041227
  Transmission Date: 20050727
  Serious: Yes (Life-Threatening)
  Sender: FDA-Public Use
  Company Number: DSA_25538_2004

PATIENT
  Age: 77 Year
  Sex: Male

DRUGS (3)
  1. TEVETEN [Suspect]
     Indication: HYPERTENSION
     Dosage: 600 MG Q DAY PO
     Route: 048
     Dates: start: 20040803, end: 20041124
  2. HYDROCHLOROTHIAZIDE [Concomitant]
  3. BETA BLOCKER [Concomitant]

REACTIONS (1)
  - CARDIOVASCULAR DISORDER [None]
